FAERS Safety Report 6073671-4 (Version None)
Quarter: 2009Q1

REPORT INFORMATION
  Report Type: 
  Country: None (occurrence: None)
  Receive Date: 20090211
  Receipt Date: 20090204
  Transmission Date: 20090719
  Serious: Yes (Other)
  Sender: FDA-Public Use
  Company Number: BR-PFIZER INC-2009165503

PATIENT

DRUGS (7)
  1. ALDACTONE [Suspect]
     Indication: HYPERTENSION
     Dosage: 25 MG, 1X/DAY
     Route: 048
     Dates: start: 20080123
  2. ENALAPRIL [Concomitant]
     Dosage: 5 MG, 1X/DAY
     Dates: start: 20080123
  3. SIMVASTATIN [Concomitant]
     Dosage: 5 MG, 1X/DAY
     Dates: start: 20080123, end: 20090114
  4. ALLOPURINOL [Concomitant]
     Dosage: 300 MG, 1X/DAY
     Dates: start: 20080128
  5. AAS [Concomitant]
     Dosage: UNK
  6. METFORMIN [Suspect]
     Dosage: UNK
     Dates: start: 20080128
  7. CARVEDILOL [Suspect]
     Dosage: 25 MG, 2X/DAY
     Dates: start: 20080123

REACTIONS (3)
  - CARDIAC DISORDER [None]
  - GASTROINTESTINAL DISORDER [None]
  - INTENTIONAL DRUG MISUSE [None]
